FAERS Safety Report 8885823 (Version 1)
Quarter: 2012Q4

REPORT INFORMATION
  Report Type: 
  Country: FR (occurrence: FR)
  Receive Date: 20121102
  Receipt Date: 20121102
  Transmission Date: 20130627
  Serious: Yes (Life-Threatening)
  Sender: FDA-Public Use
  Company Number: FR-PFIZER INC-2012271721

PATIENT
  Age: 42 Year
  Sex: Male

DRUGS (8)
  1. TRIATEC [Suspect]
     Indication: HYPERTENSION ARTERIAL
     Dosage: UNK
     Route: 048
     Dates: start: 20120623, end: 20120623
  2. XENETIX [Suspect]
     Indication: PHYSICAL EXAMINATION
     Dosage: UNK
     Route: 065
     Dates: start: 20120622, end: 20120622
  3. ATENOLOL [Concomitant]
     Dosage: UNK
  4. KARDEGIC [Concomitant]
     Dosage: UNK
  5. DOMPERIDONE [Concomitant]
     Dosage: UNK
  6. PRIMPERAN [Concomitant]
     Dosage: UNK
  7. INEXIUM [Concomitant]
     Dosage: UNK
  8. GAVISCON [Concomitant]
     Dosage: UNK

REACTIONS (3)
  - Encephalopathy [Recovered/Resolved with Sequelae]
  - Angioedema [Recovered/Resolved with Sequelae]
  - Cardio-respiratory arrest [Recovered/Resolved with Sequelae]
